FAERS Safety Report 10489116 (Version 1)
Quarter: 2014Q3

REPORT INFORMATION
  Report Type: Spontaneous
  Country: US (occurrence: None)
  Receive Date: 20140815
  Receipt Date: 20140815
  Transmission Date: 20150326
  Serious: Yes (Other)
  Sender: FDA-Public Use
  Company Number: ADR-2013-00178

PATIENT
  Age: 67 Year
  Sex: Female

DRUGS (4)
  1. BUPIVACAINE [Suspect]
     Active Substance: BUPIVACAINE
  2. LIORESAL [Suspect]
     Active Substance: BACLOFEN
  3. CLONIDINE. [Suspect]
     Active Substance: CLONIDINE
  4. MORPHINE [Suspect]
     Active Substance: MORPHINE

REACTIONS (6)
  - Muscle spasticity [None]
  - Neuralgia [None]
  - No therapeutic response [None]
  - Drug withdrawal syndrome [None]
  - Unevaluable event [None]
  - Therapeutic response decreased [None]

NARRATIVE: CASE EVENT DATE: 20130130
